FAERS Safety Report 9465275 (Version 2)
Quarter: 2013Q4

REPORT INFORMATION
  Report Type: Spontaneous
  Country: FR (occurrence: FR)
  Receive Date: 20130819
  Receipt Date: 20131030
  Transmission Date: 20140711
  Serious: Yes (Hospitalization)
  Sender: FDA-Public Use
  Company Number: PHHY2013FR087834

PATIENT
  Age: 63 Year
  Sex: Female

DRUGS (22)
  1. LOXEN [Suspect]
     Dosage: 20 MG, TID
     Route: 048
     Dates: start: 20130516, end: 20130521
  2. LOXEN [Suspect]
     Dosage: UNK UKN, UNK
     Route: 048
     Dates: start: 20130523
  3. LOSARTAN [Suspect]
     Dosage: UNK UKN, QD
     Route: 048
     Dates: start: 20130523
  4. CYMBALTA [Suspect]
     Dosage: 30 MG, TID
     Route: 048
     Dates: start: 20130404
  5. CYMBALTA [Suspect]
     Dosage: 60 MG, BID
     Route: 048
     Dates: end: 20130525
  6. SOLIAN [Suspect]
     Dosage: 50 MG, QD
     Route: 048
     Dates: start: 20130517
  7. AMLODIPINE ARROW [Suspect]
     Dosage: 5 MG, QD
     Route: 048
     Dates: start: 20130521, end: 20130523
  8. SERESTA [Concomitant]
     Dosage: 10 MG, BID
     Route: 048
     Dates: start: 201209
  9. SERESTA [Concomitant]
     Dosage: 50 MG, TID
     Route: 048
     Dates: start: 20130404
  10. SERESTA [Concomitant]
     Dosage: UNK UKN, UNK
     Route: 048
  11. SERESTA [Concomitant]
     Dosage: 50 MG, TID
     Route: 048
     Dates: start: 20130603
  12. NOCTAMIDE [Concomitant]
     Dosage: 2 MG, QD
     Route: 048
     Dates: start: 2012
  13. DRIPTANE [Concomitant]
     Dosage: 5 MG, QD
     Route: 048
     Dates: start: 20120824
  14. ABILIFY [Concomitant]
     Dosage: 15 MG, QD
     Route: 048
     Dates: start: 20130404, end: 20130415
  15. VENLAFAXIN ARROW LP [Concomitant]
     Dosage: 75 MG, TID
     Route: 048
     Dates: end: 20130404
  16. COLPOTROPHINE [Concomitant]
     Dosage: 10 MG, QD
     Route: 067
     Dates: end: 20130404
  17. LEPTICUR [Concomitant]
     Dosage: 10 MG, PRN
     Route: 048
     Dates: start: 20130415
  18. RISPERDAL [Concomitant]
     Dosage: 4 MG, QD
     Route: 048
     Dates: end: 20130404
  19. DOLIPRANE [Concomitant]
     Dosage: 500 MG, TID AS NEEDED
     Dates: start: 20120827, end: 20130404
  20. LAMICTAL [Concomitant]
     Dosage: 25 MG, QD
     Dates: start: 20130529
  21. SEROPLEX [Concomitant]
     Dosage: 10 MG, QD
     Dates: start: 20130603
  22. SEROPLEX [Concomitant]
     Dosage: 20 MG, QD
     Dates: start: 20130607

REACTIONS (1)
  - Hepatocellular injury [Recovered/Resolved]
